FAERS Safety Report 9472120 (Version 5)
Quarter: 2015Q3

REPORT INFORMATION
  Report Type: Report from Study
  Country: CA (occurrence: CA)
  Receive Date: 20130823
  Receipt Date: 20150916
  Transmission Date: 20151125
  Serious: Yes (Other)
  Sender: FDA-Public Use
  Company Number: CA-ROCHE-1265577

PATIENT
  Age: 54 Year
  Sex: Female

DRUGS (15)
  1. DEXILANT [Concomitant]
     Active Substance: DEXLANSOPRAZOLE
  2. DIPHENHYDRAMINE HCL [Concomitant]
     Active Substance: DIPHENHYDRAMINE HYDROCHLORIDE
     Route: 048
     Dates: start: 20120718
  3. AMITRIPTYLINE [Concomitant]
     Active Substance: AMITRIPTYLINE
  4. RITUXAN [Suspect]
     Active Substance: RITUXIMAB
     Indication: RHEUMATOID ARTHRITIS
     Dosage: DAY 1, 15  ON 01/AUG/2012, PREVIOUS DOSE OF RITUXIMAB?ON 02/OCT/2014, MOST RECENT DOSE OF RITUXIMAB
     Route: 042
     Dates: start: 20120718
  5. CELEBREX [Concomitant]
     Active Substance: CELECOXIB
  6. LYRICA [Concomitant]
     Active Substance: PREGABALIN
  7. METHYLPREDNISOLONE. [Concomitant]
     Active Substance: METHYLPREDNISOLONE
     Route: 042
     Dates: start: 20120718
  8. ZOLOFT [Concomitant]
     Active Substance: SERTRALINE HYDROCHLORIDE
  9. OXAZEPAM. [Concomitant]
     Active Substance: OXAZEPAM
  10. ACETAMINOPHEN. [Concomitant]
     Active Substance: ACETAMINOPHEN
     Route: 048
     Dates: start: 20120718
  11. PLAQUENIL [Concomitant]
     Active Substance: HYDROXYCHLOROQUINE SULFATE
  12. METHOTREXATE [Concomitant]
     Active Substance: METHOTREXATE
  13. TYLENOL [Concomitant]
     Active Substance: ACETAMINOPHEN
  14. FOLIC ACID. [Concomitant]
     Active Substance: FOLIC ACID
  15. PREDNISONE. [Concomitant]
     Active Substance: PREDNISONE

REACTIONS (3)
  - Breast cancer [Unknown]
  - Ill-defined disorder [Recovered/Resolved]
  - Drug ineffective [Unknown]

NARRATIVE: CASE EVENT DATE: 201304
